FAERS Safety Report 21774857 (Version 2)
Quarter: 2022Q4

REPORT INFORMATION
  Report Type: Report from Study
  Country: RU (occurrence: RU)
  Receive Date: 20221224
  Receipt Date: 20221231
  Transmission Date: 20230112
  Serious: Yes (Death)
  Sender: FDA-Public Use
  Company Number: RU-002147023-NVSC2022RU297796

PATIENT
  Age: 63 Year
  Sex: Male

DRUGS (4)
  1. TAFINLAR [Suspect]
     Active Substance: DABRAFENIB MESYLATE
     Indication: Skin cancer
     Dosage: 150 MG, QD
     Route: 048
     Dates: start: 202207
  2. TAFINLAR [Suspect]
     Active Substance: DABRAFENIB MESYLATE
     Indication: Metastases to lymph nodes
  3. MEKINIST [Suspect]
     Active Substance: TRAMETINIB DIMETHYL SULFOXIDE
     Indication: Skin cancer
     Dosage: 2 MG, QD
     Route: 048
     Dates: start: 202207
  4. MEKINIST [Suspect]
     Active Substance: TRAMETINIB DIMETHYL SULFOXIDE
     Indication: Metastases to lymph nodes

REACTIONS (4)
  - Oncologic complication [Fatal]
  - Blood pressure increased [Fatal]
  - Embolism [Fatal]
  - Drug ineffective [Fatal]

NARRATIVE: CASE EVENT DATE: 20221211
